FAERS Safety Report 11321361 (Version 2)
Quarter: 2016Q1

REPORT INFORMATION
  Report Type: Report from Study
  Country: US (occurrence: US)
  Receive Date: 20150729
  Receipt Date: 20160125
  Transmission Date: 20160525
  Serious: Yes (Hospitalization, Other)
  Sender: FDA-Public Use
  Company Number: US-GILEAD-2015-0165075

PATIENT
  Age: 71 Year
  Sex: Male

DRUGS (1)
  1. RANOLAZINE [Suspect]
     Active Substance: RANOLAZINE
     Indication: ANGINA PECTORIS
     Dosage: 500 MG, UNK
     Route: 048

REACTIONS (12)
  - Visual acuity reduced [Unknown]
  - Spinal operation [Unknown]
  - Myocardial infarction [Unknown]
  - Cardiac operation [Unknown]
  - Gastric cancer [Unknown]
  - Diabetes mellitus [Unknown]
  - Renal surgery [Unknown]
  - Stent placement [Unknown]
  - Cerebrovascular accident [Unknown]
  - Implantable defibrillator insertion [Unknown]
  - Unevaluable event [Unknown]
  - Renal failure [Unknown]

NARRATIVE: CASE EVENT DATE: 20140401
